FAERS Safety Report 12221547 (Version 1)
Quarter: 2016Q1

REPORT INFORMATION
  Report Type: Spontaneous
  Country: EG (occurrence: EG)
  Receive Date: 20160330
  Receipt Date: 20160330
  Transmission Date: 20160526
  Serious: Yes (Life-Threatening)
  Sender: FDA-Public Use
  Company Number: EG-PFIZER INC-2016180266

PATIENT
  Age: 45 Year
  Sex: Male

DRUGS (3)
  1. ZYLORIC [Concomitant]
     Active Substance: ALLOPURINOL
     Indication: GOUT
     Dosage: UNK
  2. COLCHICINE. [Concomitant]
     Active Substance: COLCHICINE
     Indication: GOUT
     Dosage: UNK
  3. TRITACE [Suspect]
     Active Substance: RAMIPRIL
     Indication: HYPERTENSION
     Dosage: 5 MG, DAILY
     Route: 065

REACTIONS (8)
  - Pain [Unknown]
  - Lip swelling [Unknown]
  - Rash [Unknown]
  - Pyrexia [Unknown]
  - Fatigue [Unknown]
  - Oropharyngeal pain [Unknown]
  - Pruritus [Unknown]
  - Swelling face [Unknown]
